FAERS Safety Report 5925054-2 (Version None)
Quarter: 2008Q3

REPORT INFORMATION
  Report Type: 
  Country: None (occurrence: None)
  Receive Date: 20080909
  Receipt Date: 20071108
  Transmission Date: 20090109
  Serious: Yes (Hospitalization)
  Sender: FDA-Public Use
  Company Number: 163-20785-07081695

PATIENT
  Age: 69 Year
  Sex: Male
  Weight: 87.5442 kg

DRUGS (9)
  1. THALOMID [Suspect]
     Indication: MULTIPLE MYELOMA
     Dosage: 200 MG, 1 IN 1 D, ORAL ; 150 MG, 3 IN 1 D, ORAL ;  50 MG, DAILY, ORAL
     Route: 048
     Dates: start: 20061122, end: 20061201
  2. THALOMID [Suspect]
     Indication: MULTIPLE MYELOMA
     Dosage: 200 MG, 1 IN 1 D, ORAL ; 150 MG, 3 IN 1 D, ORAL ;  50 MG, DAILY, ORAL
     Route: 048
     Dates: start: 20061222, end: 20061201
  3. THALOMID [Suspect]
     Indication: MULTIPLE MYELOMA
     Dosage: 200 MG, 1 IN 1 D, ORAL ; 150 MG, 3 IN 1 D, ORAL ;  50 MG, DAILY, ORAL
     Route: 048
     Dates: start: 20070913
  4. DOXIL [Concomitant]
  5. ZOMETA [Concomitant]
  6. DILAUDID [Concomitant]
  7. PROTONIX [Concomitant]
  8. ZYRTEC [Concomitant]
  9. KLONOPIN [Concomitant]

REACTIONS (2)
  - CELLULITIS [None]
  - RASH [None]
